FAERS Safety Report 9325030 (Version 1)
Quarter: 2013Q2

REPORT INFORMATION
  Report Type: Spontaneous
  Country: DE (occurrence: None)
  Receive Date: 20130530
  Receipt Date: 20130530
  Transmission Date: 20140414
  Serious: Yes (Hospitalization)
  Sender: FDA-Public Use
  Company Number: GER/GER/13/0029642

PATIENT
  Age: 31 Year
  Sex: Male

DRUGS (1)
  1. SERTRALINE [Suspect]
     Indication: DEPRESSION
     Dates: start: 20130221, end: 20130309

REACTIONS (2)
  - Drug eruption [None]
  - Rash [None]
